FAERS Safety Report 25478512 (Version 1)
Quarter: 2025Q2

REPORT INFORMATION
  Report Type: Spontaneous
  Country: US (occurrence: None)
  Receive Date: 20250624
  Receipt Date: 20250624
  Transmission Date: 20250717
  Serious: Yes (Hospitalization, Disabling, Other)
  Sender: FDA-CTU
  Company Number: None

PATIENT
  Age: 46 Year
  Sex: Female
  Weight: 56.25 kg

DRUGS (1)
  1. VEOZAH [Suspect]
     Active Substance: FEZOLINETANT
     Indication: Hot flush
     Dosage: FREQUENCY : DAILY;?
     Route: 048
     Dates: start: 20231110, end: 20240223

REACTIONS (3)
  - Hepatic enzyme increased [None]
  - Hot flush [None]
  - Drug ineffective [None]

NARRATIVE: CASE EVENT DATE: 20250510
